FAERS Safety Report 4951257-X (Version None)
Quarter: 2006Q1

REPORT INFORMATION
  Report Type: 
  Country: None (occurrence: None)
  Receive Date: 20060317
  Receipt Date: 20060307
  Transmission Date: 20060701
  Serious: Yes (Other)
  Sender: FDA-Public Use
  Company Number: 2006BH004661

PATIENT
  Age: 31 Year
  Sex: Female

DRUGS (4)
  1. LACTATED RINGER'S [Suspect]
     Indication: CAESAREAN SECTION
     Dosage: 80 ML; EVERY HR; IV
     Route: 042
     Dates: start: 20060225, end: 20060225
  2. CEFRADINE [Concomitant]
  3. TRAMADOL HCL [Concomitant]
  4. DICLOFENAC [Concomitant]

REACTIONS (4)
  - DYSPNOEA [None]
  - EYELID OEDEMA [None]
  - PRURITUS [None]
  - RASH [None]
